FAERS Safety Report 9405140 (Version 1)
Quarter: 2013Q3

REPORT INFORMATION
  Report Type: Report from Study
  Country: US (occurrence: US)
  Receive Date: 20130717
  Receipt Date: 20130717
  Transmission Date: 20140515
  Serious: Yes (Other)
  Sender: FDA-Public Use
  Company Number: US-ABBOTT-13P-163-1118091-00

PATIENT
  Sex: Male
  Weight: 79 kg

DRUGS (2)
  1. HUMIRA [Suspect]
     Indication: CROHN^S DISEASE
     Route: 058
     Dates: start: 20120905
  2. IMURAN [Concomitant]
     Indication: CROHN^S DISEASE

REACTIONS (4)
  - Convulsion [Unknown]
  - Laceration [Unknown]
  - Haemorrhage [Unknown]
  - Loss of consciousness [Unknown]
